FAERS Safety Report 10906261 (Version 1)
Quarter: 2015Q1

REPORT INFORMATION
  Report Type: Spontaneous
  Country: US (occurrence: US)
  Receive Date: 20150311
  Receipt Date: 20150311
  Transmission Date: 20150721
  Serious: Yes (Other)
  Sender: FDA-Public Use
  Company Number: US-ALLERGAN-1503856US

PATIENT
  Age: 30 Year
  Sex: Female

DRUGS (1)
  1. ZYPRED [Suspect]
     Active Substance: GATIFLOXACIN\PREDNISOLONE ACETATE
     Indication: PRODUCT USED FOR UNKNOWN INDICATION

REACTIONS (4)
  - Glaucoma [Not Recovered/Not Resolved]
  - Eye inflammation [Unknown]
  - Blindness [Not Recovered/Not Resolved]
  - Cataract [Unknown]
